FAERS Safety Report 14543013 (Version 2)
Quarter: 2018Q2

REPORT INFORMATION
  Report Type: Report from Study
  Country: US (occurrence: US)
  Receive Date: 20180216
  Receipt Date: 20180413
  Transmission Date: 20180711
  Serious: Yes (Hospitalization, Other)
  Sender: FDA-Public Use
  Company Number: US-BAYER-2018-029026

PATIENT
  Age: 30 Year
  Sex: Female

DRUGS (2)
  1. MIRENA [Suspect]
     Active Substance: LEVONORGESTREL
     Indication: CONTRACEPTION
     Dosage: 20 MCG/24HR, CONT
     Route: 015
     Dates: start: 20170908, end: 20180205
  2. MIRENA [Suspect]
     Active Substance: LEVONORGESTREL
     Indication: CONTRACEPTION

REACTIONS (5)
  - Ectopic pregnancy with contraceptive device [Recovered/Resolved with Sequelae]
  - Ovarian cyst [None]
  - Drug ineffective [Recovered/Resolved with Sequelae]
  - Dyspnoea [None]
  - Peritoneal haemorrhage [Recovered/Resolved with Sequelae]
